FAERS Safety Report 9735752 (Version 1)
Quarter: 2013Q4

REPORT INFORMATION
  Report Type: Spontaneous
  Country: US (occurrence: US)
  Receive Date: 20131206
  Receipt Date: 20131206
  Transmission Date: 20140711
  Serious: No
  Sender: FDA-Public Use
  Company Number: US-GILEAD-2009-0022685

PATIENT
  Age: 59 Year
  Sex: Female
  Weight: 83.91 kg

DRUGS (10)
  1. LETAIRIS [Suspect]
     Indication: PULMONARY ARTERIAL HYPERTENSION
     Route: 048
     Dates: start: 20090617
  2. LASIX [Concomitant]
  3. DIOVAN HCT [Concomitant]
  4. ALBUTEROL [Concomitant]
  5. SPIRIVA [Concomitant]
  6. ADVAIR [Concomitant]
  7. POTASSIUM [Concomitant]
  8. VITAMIN B [Concomitant]
  9. MULTI 50+ TAB FOR HER [Concomitant]
  10. CALCIUM +D [Concomitant]

REACTIONS (2)
  - Pollakiuria [Not Recovered/Not Resolved]
  - Cough [Not Recovered/Not Resolved]
